FAERS Safety Report 24129890 (Version 1)
Quarter: 2024Q3

REPORT INFORMATION
  Report Type: Spontaneous
  Country: NL (occurrence: NL)
  Receive Date: 20240724
  Receipt Date: 20240724
  Transmission Date: 20241017
  Serious: Yes (Congenital Anomaly, Other)
  Sender: ALK-ABELLO
  Company Number: None

PATIENT

DRUGS (2)
  1. BETULA PENDULA POLLEN [Suspect]
     Active Substance: BETULA PENDULA POLLEN
     Indication: Hypersensitivity
     Dosage: 12 SQ-BET, QD
     Dates: start: 20200908
  2. GRAZAX [Suspect]
     Active Substance: PHLEUM PRATENSE POLLEN
     Indication: Hypersensitivity
     Dosage: 1X PER DAG 1 STUK
     Dates: start: 20201014

REACTIONS (2)
  - VACTERL syndrome [Unknown]
  - Maternal exposure during pregnancy [Unknown]
